FAERS Safety Report 6252677-6 (Version None)
Quarter: 2009Q3

REPORT INFORMATION
  Report Type: 
  Country: None (occurrence: None)
  Receive Date: 20090701
  Receipt Date: 20090626
  Transmission Date: 20100115
  Serious: Yes (Death)
  Sender: FDA-Public Use
  Company Number: PHEH2009US06774

PATIENT
  Sex: Male

DRUGS (1)
  1. GLEEVEC [Suspect]
     Indication: BRAIN NEOPLASM MALIGNANT
     Dosage: 400 MG, QD
     Dates: start: 20090107

REACTIONS (1)
  - DEATH [None]
